FAERS Safety Report 17674197 (Version 1)
Quarter: 2020Q2

REPORT INFORMATION
  Report Type: Spontaneous
  Country: DE (occurrence: DE)
  Receive Date: 20200416
  Receipt Date: 20200416
  Transmission Date: 20200714
  Serious: Yes (Hospitalization)
  Sender: FDA-Public Use
  Company Number: DE-DRREDDYS-GER/GER/20/0121914

PATIENT
  Age: 44 Year
  Sex: Female

DRUGS (2)
  1. METHOCARBAMOL. [Suspect]
     Active Substance: METHOCARBAMOL
     Indication: PRODUCT USED FOR UNKNOWN INDICATION
     Dosage: 750 MG, 2-2-2-0, TABLETTEN
     Route: 048
  2. IBUPROFEN. [Suspect]
     Active Substance: IBUPROFEN
     Indication: PRODUCT USED FOR UNKNOWN INDICATION
     Dosage: 600 MG, 4X, TABLETTEN (600 MG, 4X, TABLETS)
     Route: 048

REACTIONS (3)
  - Oedema peripheral [Unknown]
  - Proteinuria [Unknown]
  - Swelling face [Unknown]
